FAERS Safety Report 4742429-8 (Version None)
Quarter: 2005Q3

REPORT INFORMATION
  Report Type: 
  Country: None (occurrence: None)
  Receive Date: 20050808
  Receipt Date: 20050726
  Transmission Date: 20060218
  Serious: Yes (Death)
  Sender: FDA-Public Use
  Company Number: S05-USA-03721-01

PATIENT
  Age: 41 Year
  Sex: Male
  Weight: 86.1834 kg

DRUGS (5)
  1. LEXAPRO [Suspect]
     Indication: ANXIETY
     Dosage: 10 MG QD PO
     Route: 048
     Dates: start: 20050416, end: 20050419
  2. LEXAPRO [Suspect]
     Indication: DEPRESSION
     Dosage: 10 MG QD PO
     Route: 048
     Dates: start: 20050416, end: 20050419
  3. XANAX [Concomitant]
  4. ECOTRIN (ACETYLSALICYLIC ACID) [Concomitant]
  5. TYLENOL [Concomitant]

REACTIONS (3)
  - COMPLETED SUICIDE [None]
  - EXSANGUINATION [None]
  - LACERATION [None]
